FAERS Safety Report 18454788 (Version 1)
Quarter: 2020Q4

REPORT INFORMATION
  Report Type: Spontaneous
  Country: DZ (occurrence: DZ)
  Receive Date: 20201102
  Receipt Date: 20201102
  Transmission Date: 20210114
  Serious: Yes (Death)
  Sender: FDA-Public Use
  Company Number: DZ-PERRIGO-20DZ015188

PATIENT
  Age: 26 Month
  Sex: Female

DRUGS (1)
  1. ACETAMINOPHEN. [Suspect]
     Active Substance: ACETAMINOPHEN
     Indication: ACCIDENTAL OVERDOSE
     Dosage: UNK
     Route: 048

REACTIONS (8)
  - Cardiac arrest [Fatal]
  - Accidental exposure to product by child [Fatal]
  - Seizure [Fatal]
  - Liver injury [Fatal]
  - Haematemesis [Fatal]
  - Hepatic encephalopathy [Fatal]
  - Altered state of consciousness [Fatal]
  - Hypoglycaemia [Fatal]
